FAERS Safety Report 16557289 (Version 1)
Quarter: 2019Q3

REPORT INFORMATION
  Report Type: Spontaneous
  Country: US (occurrence: US)
  Receive Date: 20190711
  Receipt Date: 20190711
  Transmission Date: 20191004
  Serious: Yes (Death, Life-Threatening, Other)
  Sender: FDA-Public Use
  Company Number: US-PFIZER INC-K200700488

PATIENT
  Age: 35 Year
  Sex: Male
  Weight: 108.84 kg

DRUGS (23)
  1. DILAUDID [Interacting]
     Active Substance: HYDROMORPHONE HYDROCHLORIDE
     Dosage: 3 MG, SINGLE
     Route: 042
     Dates: start: 20070411, end: 20070411
  2. CIPROFLOXACIN. [Concomitant]
     Active Substance: CIPROFLOXACIN
     Indication: DIVERTICULUM
     Dosage: 200 MG, Q12 HOURS
     Route: 042
     Dates: start: 20070411, end: 20070413
  3. METOPROLOL SUCCINATE. [Concomitant]
     Active Substance: METOPROLOL SUCCINATE
     Indication: HYPERTENSION
     Dosage: 25 MG, 1X/DAY
     Route: 048
     Dates: start: 20070411, end: 20070413
  4. DILAUDID [Interacting]
     Active Substance: HYDROMORPHONE HYDROCHLORIDE
     Dosage: 3 MG, SINGLE
     Route: 042
     Dates: start: 20070412, end: 20070412
  5. METRONIDAZOLE. [Concomitant]
     Active Substance: METRONIDAZOLE
     Indication: DIVERTICULUM
     Dosage: 500 MG, Q8H
     Route: 042
     Dates: start: 20070411, end: 20070413
  6. DILAUDID [Interacting]
     Active Substance: HYDROMORPHONE HYDROCHLORIDE
     Dosage: 3 MG, SINGLE
     Route: 042
     Dates: start: 20070412, end: 20070412
  7. DILAUDID [Interacting]
     Active Substance: HYDROMORPHONE HYDROCHLORIDE
     Dosage: 3 MG, SINGLE
     Route: 042
     Dates: start: 20070412, end: 20070412
  8. AMBIEN [Concomitant]
     Active Substance: ZOLPIDEM TARTRATE
     Dosage: UNK, PRN
  9. ACETAMINOPHEN ISEI [Concomitant]
     Dosage: UNK
     Route: 065
     Dates: start: 20070411, end: 20070413
  10. DILAUDID [Interacting]
     Active Substance: HYDROMORPHONE HYDROCHLORIDE
     Dosage: 3 MG, SINGLE
     Route: 042
     Dates: start: 20070412, end: 20070412
  11. TOPROL XL [Concomitant]
     Active Substance: METOPROLOL SUCCINATE
  12. LACTOBACILLUS GG [Concomitant]
     Indication: PROBIOTIC THERAPY
     Dosage: 1 CAP, BID
     Route: 048
     Dates: start: 20070412, end: 20070413
  13. TOPROL XL [Concomitant]
     Active Substance: METOPROLOL SUCCINATE
     Dosage: UNK
     Route: 065
  14. SONATA [Suspect]
     Active Substance: ZALEPLON
     Indication: INSOMNIA
     Dosage: 5 MG, AS NEEDED (AT BEDTIME)
     Route: 048
     Dates: start: 20070411, end: 20070412
  15. DILAUDID [Interacting]
     Active Substance: HYDROMORPHONE HYDROCHLORIDE
     Dosage: 3 MG, SINGLE
     Route: 042
     Dates: start: 20070412, end: 20070412
  16. DILAUDID [Interacting]
     Active Substance: HYDROMORPHONE HYDROCHLORIDE
     Indication: PAIN
     Dosage: 1 MG, SINGLE
     Route: 042
     Dates: start: 20070411, end: 20070411
  17. DILAUDID [Interacting]
     Active Substance: HYDROMORPHONE HYDROCHLORIDE
     Dosage: 3 MG, SINGLE
     Route: 042
     Dates: start: 20070412, end: 20070412
  18. XANAX XL [Concomitant]
     Indication: ANXIETY
     Dosage: 1 MG, AS NEEDED, Q8H
     Route: 048
     Dates: start: 20070401, end: 20070413
  19. XANAX [Concomitant]
     Active Substance: ALPRAZOLAM
     Dosage: UNK
     Route: 065
     Dates: start: 20070401, end: 20070413
  20. HEPARIN [Concomitant]
     Active Substance: HEPARIN SODIUM
     Indication: THROMBOSIS PROPHYLAXIS
     Dosage: 5000 IU, Q8H
     Route: 058
     Dates: start: 20070412, end: 20070413
  21. DILAUDID [Interacting]
     Active Substance: HYDROMORPHONE HYDROCHLORIDE
     Dosage: 3 MG, SINGLE
     Route: 042
     Dates: start: 20070411, end: 20070411
  22. NICOTINE. [Concomitant]
     Active Substance: NICOTINE
     Dosage: 21 MG, HR, SINGLE DOSE
     Route: 061
     Dates: start: 20070412, end: 20070412
  23. ACETAMINOPHEN. [Concomitant]
     Active Substance: ACETAMINOPHEN
     Indication: PYREXIA
     Dosage: 650 MG, AS NEEDED, Q4H
     Route: 048
     Dates: start: 20070411, end: 20070413

REACTIONS (9)
  - Cardiac arrest [Fatal]
  - Nausea [Unknown]
  - Diarrhoea [Unknown]
  - Drug interaction [Unknown]
  - Hypoxic-ischaemic encephalopathy [Not Recovered/Not Resolved]
  - Unresponsive to stimuli [Unknown]
  - Seizure [Recovered/Resolved]
  - Snoring [Unknown]
  - Chills [Unknown]

NARRATIVE: CASE EVENT DATE: 200704
